FAERS Safety Report 23932019 (Version 1)
Quarter: 2024Q2

REPORT INFORMATION
  Report Type: Spontaneous
  Country: US (occurrence: US)
  Receive Date: 20240603
  Receipt Date: 20240603
  Transmission Date: 20240716
  Serious: Yes (Death, Life-Threatening)
  Sender: FDA-Public Use
  Company Number: US-009507513-2405USA008823

PATIENT
  Age: 57 Year
  Sex: Male

DRUGS (1)
  1. KEYTRUDA [Suspect]
     Active Substance: PEMBROLIZUMAB
     Indication: Small cell lung cancer
     Dosage: UNK
     Route: 042

REACTIONS (3)
  - Cough [Fatal]
  - Haemoptysis [Fatal]
  - Insomnia [Unknown]

NARRATIVE: CASE EVENT DATE: 20181001
